FAERS Safety Report 4999514-5 (Version None)
Quarter: 2006Q2

REPORT INFORMATION
  Report Type: 
  Country: None (occurrence: None)
  Receive Date: 20060511
  Receipt Date: 20060420
  Transmission Date: 20061013
  Serious: Yes (Other)
  Sender: FDA-Public Use
  Company Number: PHEH2006US05237

PATIENT
  Age: 67 Year
  Sex: Male
  Weight: 104.31 kg

DRUGS (9)
  1. ZOMETA [Suspect]
     Indication: MULTIPLE MYELOMA
     Dosage: 4 MG EVERY 28 DAYS
     Route: 042
     Dates: start: 20050715, end: 20051117
  2. AREDIA [Suspect]
     Indication: MULTIPLE MYELOMA
     Dosage: 90 MG; ONE DOSE
     Dates: start: 20050916, end: 20050916
  3. THALIDOMIDE [Concomitant]
     Indication: MULTIPLE MYELOMA
     Dosage: 150 MG, QD
     Dates: start: 20050715, end: 20060203
  4. LASIX [Concomitant]
     Dosage: 40 MG, UNK
  5. POTASSIUM CHLORIDE [Concomitant]
     Dosage: 20 MEQ, UNK
  6. SENOKOT [Concomitant]
  7. DECADRON [Concomitant]
  8. ARANESP [Concomitant]
     Indication: ANAEMIA
     Dosage: 300 UG, UNK
     Dates: start: 20050715, end: 20051230
  9. VICODIN [Concomitant]
     Indication: PAIN

REACTIONS (15)
  - BONE DISORDER [None]
  - BONE PAIN [None]
  - DENTAL EXAMINATION ABNORMAL [None]
  - DENTURE WEARER [None]
  - DIABETES MELLITUS [None]
  - ERYTHEMA [None]
  - LOCAL SWELLING [None]
  - OSTEOMYELITIS [None]
  - OSTEONECROSIS [None]
  - PAIN [None]
  - PURULENT DISCHARGE [None]
  - TOOTH DEPOSIT [None]
  - TOOTH DISORDER [None]
  - TOOTH EXTRACTION [None]
  - TOOTH LOSS [None]
